FAERS Safety Report 16578296 (Version 1)
Quarter: 2019Q3

REPORT INFORMATION
  Report Type: Report from Study
  Country: US (occurrence: US)
  Receive Date: 20190716
  Receipt Date: 20190716
  Transmission Date: 20191004
  Serious: Yes (Other)
  Sender: FDA-Public Use
  Company Number: US-TEVA-2019-US-1077744

PATIENT
  Age: 26 Year
  Sex: Female

DRUGS (13)
  1. LINEZOLID. [Suspect]
     Active Substance: LINEZOLID
     Dosage: 1200 MILLIGRAM DAILY; POST-TRANSPLANT
     Route: 048
  2. CEFOXITIN [Concomitant]
     Active Substance: CEFOXITIN SODIUM
     Indication: MYCOBACTERIUM ABSCESSUS INFECTION
     Dosage: PRE-TRANSPLANT
     Route: 042
  3. AZITHROMYCIN ANHYDROUS. [Concomitant]
     Active Substance: AZITHROMYCIN ANHYDROUS
     Indication: MYCOBACTERIUM ABSCESSUS INFECTION
     Dosage: PRE-TRANSPLANT
     Route: 048
  4. TIGECYCLINE. [Concomitant]
     Active Substance: TIGECYCLINE
     Indication: MYCOBACTERIUM ABSCESSUS INFECTION
     Dosage: PRE-TRANSPLANT
     Route: 042
  5. NORMAL SALINE [Concomitant]
     Active Substance: SODIUM CHLORIDE
     Indication: IRRIGATION THERAPY
     Dosage: 1G AMIKACIN IN 5L 0.9% SODIUM CHLORIDE FOR IRRIGATION OF PLEURAL CAVITY INTRA-OPERATIVELY
     Route: 065
  6. MEDIHONEY [Concomitant]
     Active Substance: HONEY
     Indication: POSTOPERATIVE WOUND INFECTION
     Dosage: APPLIED EVERY 8 HOURS POST-TRANSPLANT
     Route: 061
  7. AMIKACIN. [Suspect]
     Active Substance: AMIKACIN
     Indication: MYCOBACTERIUM ABSCESSUS INFECTION
     Dosage: IV AMIKACIN 25 MG/KG THREE TIMES A WEEK
     Route: 042
  8. AMIKACIN. [Suspect]
     Active Substance: AMIKACIN
     Dosage: 1G AMIKACIN IN 5L 0.9% SODIUM CHLORIDE FOR IRRIGATION OF PLEURAL CAVITY INTRA-OPERATIVELY
     Route: 065
  9. CEFOXITIN [Concomitant]
     Active Substance: CEFOXITIN SODIUM
     Dosage: POST-TRANSPLANT
     Route: 042
  10. LINEZOLID. [Suspect]
     Active Substance: LINEZOLID
     Indication: MYCOBACTERIUM ABSCESSUS INFECTION
     Dosage: 600 MILLIGRAM DAILY; PRE-TRANSPLANT
     Route: 048
  11. AZITHROMYCIN ANHYDROUS. [Concomitant]
     Active Substance: AZITHROMYCIN ANHYDROUS
     Dosage: POST-TRANSPLANT
     Route: 048
  12. AMIKACIN. [Suspect]
     Active Substance: AMIKACIN
     Dosage: 250 MILLIGRAM DAILY; PRE-TRANSPLANT: INHALED AMIKACIN 250MG EVERY 24 HOURS
     Route: 055
  13. TIGECYCLINE. [Concomitant]
     Active Substance: TIGECYCLINE
     Dosage: POST-TRANSPLANT
     Route: 042

REACTIONS (2)
  - Neuropathy peripheral [Unknown]
  - Ototoxicity [Unknown]
